FAERS Safety Report 8197069-8 (Version None)
Quarter: 2012Q1

REPORT INFORMATION
  Report Type: 
  Country: None (occurrence: None)
  Receive Date: 20120309
  Receipt Date: 20120229
  Transmission Date: 20120608
  Serious: Yes (Hospitalization)
  Sender: FDA-Public Use
  Company Number: JP-EISAI INC-E7389-01374-SPO-JP

PATIENT
  Sex: Female
  Weight: 58 kg

DRUGS (14)
  1. LANSOPRAZOLE [Concomitant]
     Route: 048
  2. PROCHLORPERAZINE [Concomitant]
     Indication: PROPHYLAXIS
     Route: 048
  3. HALAVEN [Suspect]
     Indication: METASTASES TO SKIN
  4. LEUPROLIDE ACETATE [Concomitant]
     Indication: BREAST CANCER RECURRENT
     Route: 065
     Dates: start: 20021217
  5. HALAVEN [Suspect]
     Indication: BREAST CANCER
     Route: 041
     Dates: start: 20110812, end: 20110812
  6. HALAVEN [Suspect]
     Indication: METASTASES TO LYMPH NODES
     Route: 041
     Dates: start: 20110805, end: 20110805
  7. ZOMETA [Concomitant]
     Indication: METASTASES TO BONE
     Route: 041
  8. ARDEPHYLLIN [Concomitant]
     Route: 048
  9. INDERAL [Concomitant]
     Indication: ARRHYTHMIA
     Route: 048
  10. HALAVEN [Suspect]
     Indication: METASTASES TO LUNG
     Route: 041
     Dates: start: 20110826, end: 20120217
  11. DICLOFENAC SODIUM [Concomitant]
     Indication: PYREXIA
     Route: 048
  12. HALAVEN [Suspect]
     Indication: METASTASES TO BONE
  13. SINGULAIR [Concomitant]
     Route: 048
  14. EPEL [Concomitant]
     Indication: MYALGIA
     Route: 048

REACTIONS (6)
  - MALAISE [None]
  - ASPARTATE AMINOTRANSFERASE INCREASED [None]
  - ALOPECIA [None]
  - LEUKOPENIA [None]
  - NAUSEA [None]
  - FEMUR FRACTURE [None]
